FAERS Safety Report 8615274-0 (Version None)
Quarter: 2012Q3

REPORT INFORMATION
  Report Type: 
  Country: None (occurrence: None)
  Receive Date: 20120823
  Receipt Date: 20120820
  Transmission Date: 20120928
  Serious: No
  Sender: FDA-Public Use
  Company Number: US-PFIZER INC-2012203536

PATIENT
  Age: 87 Year
  Sex: Female
  Weight: 58.957 kg

DRUGS (3)
  1. ASPIRIN [Concomitant]
     Dosage: 81 MG, DAILY
  2. ADVIL [Suspect]
     Indication: MUSCULOSKELETAL PAIN
  3. ADVIL [Suspect]
     Indication: NECK PAIN
     Dosage: 200 MG, DAILY
     Route: 048
     Dates: start: 20120819

REACTIONS (1)
  - DRUG INEFFECTIVE [None]
